FAERS Safety Report 19910402 (Version 1)
Quarter: 2021Q4

REPORT INFORMATION
  Report Type: Spontaneous
  Country: FR (occurrence: FR)
  Receive Date: 20211004
  Receipt Date: 20211004
  Transmission Date: 20220303
  Serious: Yes (Hospitalization, Other)
  Sender: FDA-Public Use
  Company Number: FR-AFSSAPS-GR20214157

PATIENT
  Age: 21 Year
  Sex: Female
  Weight: 59 kg

DRUGS (3)
  1. PAROXETINE [Suspect]
     Active Substance: PAROXETINE
     Indication: Intentional overdose
     Dosage: 270 MILLIGRAM
     Route: 048
     Dates: start: 20210607, end: 20210607
  2. QUETIAPINE [Suspect]
     Active Substance: QUETIAPINE
     Indication: Intentional overdose
     Dosage: 3150 MILLIGRAM
     Route: 048
     Dates: start: 20210607, end: 20210607
  3. TRAMADOL [Suspect]
     Active Substance: TRAMADOL
     Indication: Intentional overdose
     Dosage: 1500 MILLIGRAM
     Route: 048
     Dates: start: 20210607, end: 20210607

REACTIONS (5)
  - Poisoning deliberate [Recovered/Resolved]
  - Tachycardia [Recovered/Resolved]
  - Bradypnoea [Recovered/Resolved]
  - Somnolence [Recovered/Resolved]
  - Diplopia [Recovered/Resolved]

NARRATIVE: CASE EVENT DATE: 20210607
